FAERS Safety Report 20586052 (Version 1)
Quarter: 2022Q1

REPORT INFORMATION
  Report Type: Spontaneous
  Country: US (occurrence: None)
  Receive Date: 20220313
  Receipt Date: 20220313
  Transmission Date: 20220424
  Serious: Yes (Death)
  Sender: FDA-Public Use
  Company Number: US-ROCHE-3048272

PATIENT
  Sex: Female

DRUGS (1)
  1. ESBRIET [Suspect]
     Active Substance: PIRFENIDONE
     Indication: Idiopathic pulmonary fibrosis
     Dosage: TAKE 1 CAPSULE BY MOUTH 3 TIMES A DAY FOR 7 DAYS THEN 2 CAPSULES BY MOUTH 3 TIMES A DAY FOR 7 DAYS T
     Route: 048
     Dates: start: 202106

REACTIONS (1)
  - Death [Fatal]
